FAERS Safety Report 21371313 (Version 2)
Quarter: 2022Q4

REPORT INFORMATION
  Report Type: Spontaneous
  Country: DE (occurrence: DE)
  Receive Date: 20220923
  Receipt Date: 20221017
  Transmission Date: 20230112
  Serious: Yes (Hospitalization)
  Sender: FDA-Public Use
  Company Number: DE-ADRED-06978-03

PATIENT
  Age: 69 Year
  Sex: Male

DRUGS (13)
  1. OLANZAPINE [Suspect]
     Active Substance: OLANZAPINE
     Indication: Product used for unknown indication
     Dosage: 5 MG, BID (5 MG, 1-0-1-0)
     Route: 065
  2. OLANZAPINE [Suspect]
     Active Substance: OLANZAPINE
     Dosage: 5 MG, EACH MORNING
     Route: 065
  3. OLANZAPINE [Suspect]
     Active Substance: OLANZAPINE
     Dosage: 20 MG, DAILY
     Route: 065
  4. RISPERIDONE [Suspect]
     Active Substance: RISPERIDONE
     Indication: Product used for unknown indication
     Dosage: 1 MG, DAILY (0-0-1-0)
     Route: 065
  5. TORSEMIDE [Suspect]
     Active Substance: TORSEMIDE
     Indication: Product used for unknown indication
     Dosage: 10 MG, DAILY (1-0-0-0)
     Route: 065
  6. VALPROATE SODIUM [Suspect]
     Active Substance: VALPROATE SODIUM
     Indication: Product used for unknown indication
     Dosage: 500 MG, (500 MG, 0-0-1-0)
     Route: 065
  7. VALPROATE SODIUM [Suspect]
     Active Substance: VALPROATE SODIUM
     Dosage: 300 MG, (300 MG, 0-0-1-0)
     Route: 065
  8. METHIONINE [Concomitant]
     Active Substance: METHIONINE
     Indication: Product used for unknown indication
     Dosage: 500 MG, BID (500 MG, 1-0-1-0)
     Route: 065
  9. LORAZEPAM [Concomitant]
     Active Substance: LORAZEPAM
     Indication: Product used for unknown indication
     Dosage: 1 MG, BID (1 MG, 1-0-1-0)
     Route: 065
  10. MACROGOL;POTASSIUM CHLORIDE;SODIUM BICARBONAT [Concomitant]
     Indication: Product used for unknown indication
     Dosage: 1-1-0-0
  11. BIPERIDEN [Concomitant]
     Active Substance: BIPERIDEN
     Indication: Product used for unknown indication
     Dosage: 2 MG, DAILY (2 MG, 0-1-0-0)
     Route: 065
  12. BIPERIDEN [Concomitant]
     Active Substance: BIPERIDEN
     Dosage: 4 MG, DAILY (4 MG, 1-0-0-0)
     Route: 065
  13. CHOLECALCIFEROL [Concomitant]
     Active Substance: CHOLECALCIFEROL
     Indication: Product used for unknown indication
     Dosage: 1000 IE / TAG, 1-0-0-0
     Route: 065

REACTIONS (23)
  - General physical health deterioration [Unknown]
  - Quadriplegia [Unknown]
  - Paresis [Unknown]
  - Electrolyte imbalance [Unknown]
  - Dehydration [Unknown]
  - Disturbance in attention [Unknown]
  - Faecaloma [Unknown]
  - Schizophrenia [Unknown]
  - Anaemia [Unknown]
  - Schizophrenia [Unknown]
  - Condition aggravated [Unknown]
  - Polyneuropathy [Unknown]
  - Paraplegia [Unknown]
  - Depressed level of consciousness [Unknown]
  - Hyponatraemia [Unknown]
  - Aphasia [Unknown]
  - Gaze palsy [Unknown]
  - Hypertension [Unknown]
  - Abdominal pain [Unknown]
  - Vomiting [Unknown]
  - Diarrhoea [Unknown]
  - Seizure [Unknown]
  - Constipation [Unknown]
